FAERS Safety Report 4438953-8 (Version None)
Quarter: 2004Q3

REPORT INFORMATION
  Report Type: 
  Country: None (occurrence: None)
  Receive Date: 20040830
  Receipt Date: 20040818
  Transmission Date: 20050211
  Serious: Yes (Other)
  Sender: FDA-Public Use
  Company Number: 2004228894BR

PATIENT
  Age: 37 Year
  Sex: Female

DRUGS (1)
  1. DEPO-PROVERA [Suspect]
     Indication: CONTRACEPTION
     Dosage: 150 MG, TRIMESTRAL FIRST INJ, IV
     Route: 042
     Dates: start: 20040801, end: 20040801

REACTIONS (7)
  - ABNORMAL BEHAVIOUR [None]
  - DELIRIUM [None]
  - DEPRESSION [None]
  - DIZZINESS [None]
  - HALLUCINATION, VISUAL [None]
  - MALAISE [None]
  - MEDICATION ERROR [None]
